FAERS Safety Report 26077031 (Version 1)
Quarter: 2025Q4

REPORT INFORMATION
  Report Type: Spontaneous
  Country: US (occurrence: None)
  Receive Date: 20251121
  Receipt Date: 20251121
  Transmission Date: 20260118
  Serious: Yes (Other)
  Sender: FDA-CTU
  Company Number: None

PATIENT
  Age: 49 Year
  Sex: Female

DRUGS (1)
  1. PEMGARDA [Suspect]
     Active Substance: PEMIVIBART
     Indication: Immunodeficiency
     Dosage: OTHER FREQUENCY : Q3MONTHS;?
     Route: 042

REACTIONS (3)
  - Vision blurred [None]
  - Vitreous floaters [None]
  - Infusion related reaction [None]

NARRATIVE: CASE EVENT DATE: 20251121
